FAERS Safety Report 13140495 (Version 2)
Quarter: 2017Q1

REPORT INFORMATION
  Report Type: Spontaneous
  Country: US (occurrence: US)
  Receive Date: 20170123
  Receipt Date: 20170125
  Transmission Date: 20170428
  Serious: Yes (Other)
  Sender: FDA-Public Use
  Company Number: US-CELGENEUS-USA-2017012773

PATIENT
  Sex: Female

DRUGS (1)
  1. OTEZLA [Suspect]
     Active Substance: APREMILAST
     Indication: PSORIASIS
     Dosage: 60 MILLIGRAM ?CUTTING PILL IN HALF
     Route: 048
     Dates: start: 201608

REACTIONS (4)
  - Adverse event [Unknown]
  - Wrong technique in product usage process [Unknown]
  - Extrasystoles [Unknown]
  - Drug ineffective [Unknown]
